FAERS Safety Report 12328489 (Version 1)
Quarter: 2016Q2

REPORT INFORMATION
  Report Type: Spontaneous
  Country: US (occurrence: US)
  Receive Date: 20160503
  Receipt Date: 20160503
  Transmission Date: 20160815
  Serious: No
  Sender: FDA-Public Use
  Company Number: US-BEH-2015048433

PATIENT
  Sex: Female
  Weight: 59 kg

DRUGS (9)
  1. EPIPEN [Concomitant]
     Active Substance: EPINEPHRINE
  2. PROBIOTIC [Concomitant]
     Active Substance: PROBIOTICS NOS
  3. YAZ [Concomitant]
     Active Substance: DROSPIRENONE\ETHINYL ESTRADIOL
  4. ZYRTEC [Concomitant]
     Active Substance: CETIRIZINE HYDROCHLORIDE
  5. DIPHENHYDRAMINE. [Concomitant]
     Active Substance: DIPHENHYDRAMINE
  6. EXCEDRIN [Concomitant]
     Active Substance: ACETAMINOPHEN\ASPIRIN\CAFFEINE
  7. ZITHROMAX [Concomitant]
     Active Substance: AZITHROMYCIN DIHYDRATE
  8. LIDOCAINE. [Concomitant]
     Active Substance: LIDOCAINE
  9. HIZENTRA [Suspect]
     Active Substance: HUMAN IMMUNOGLOBULIN G
     Indication: IMMUNODEFICIENCY COMMON VARIABLE
     Route: 058
     Dates: start: 20150103, end: 20150130

REACTIONS (2)
  - Urinary tract infection [Unknown]
  - Urticaria [Unknown]
